FAERS Safety Report 11927088 (Version 1)
Quarter: 2016Q1

REPORT INFORMATION
  Report Type: Spontaneous
  Country: ES (occurrence: ES)
  Receive Date: 20160119
  Receipt Date: 20160119
  Transmission Date: 20160526
  Serious: Yes (Other)
  Sender: FDA-Public Use
  Company Number: ES-JNJFOC-20160112454

PATIENT
  Sex: Female

DRUGS (1)
  1. REMICADE [Suspect]
     Active Substance: INFLIXIMAB
     Indication: RHEUMATOID ARTHRITIS
     Route: 042
     Dates: start: 2001, end: 201409

REACTIONS (3)
  - Optic neuritis [Recovered/Resolved]
  - Headache [Unknown]
  - Ophthalmic herpes simplex [Unknown]

NARRATIVE: CASE EVENT DATE: 2014
